FAERS Safety Report 8206653-4 (Version None)
Quarter: 2012Q1

REPORT INFORMATION
  Report Type: 
  Country: None (occurrence: None)
  Receive Date: 20120314
  Receipt Date: 20120305
  Transmission Date: 20120608
  Serious: Yes (Hospitalization)
  Sender: FDA-Public Use
  Company Number: US-BIOGENIDEC-2012BI008167

PATIENT
  Sex: Female

DRUGS (1)
  1. AVONEX [Suspect]
     Indication: MULTIPLE SCLEROSIS
     Route: 030
     Dates: start: 20020726, end: 20050113

REACTIONS (5)
  - POST PROCEDURAL COMPLICATION [None]
  - LIMB CRUSHING INJURY [None]
  - PAIN [None]
  - MEMORY IMPAIRMENT [None]
  - FEAR [None]
